FAERS Safety Report 14021517 (Version 1)
Quarter: 2017Q3

REPORT INFORMATION
  Report Type: Spontaneous
  Country: JP (occurrence: JP)
  Receive Date: 20170928
  Receipt Date: 20170928
  Transmission Date: 20171128
  Serious: Yes (Life-Threatening)
  Sender: FDA-Public Use
  Company Number: JP-FRESENIUS KABI-FK201708028

PATIENT
  Age: 68 Year
  Sex: Male
  Weight: 60 kg

DRUGS (4)
  1. SULBACILLIN [Concomitant]
     Active Substance: AMPICILLIN SODIUM\SULBACTAM SODIUM
     Indication: PRODUCT USED FOR UNKNOWN INDICATION
  2. PROPOFOL FRESENIUS (NOT SPECIFIED) [Suspect]
     Active Substance: PROPOFOL
     Indication: SEDATION
     Route: 042
     Dates: start: 20170805, end: 20170807
  3. GASTER [Concomitant]
     Active Substance: FAMOTIDINE
     Indication: PRODUCT USED FOR UNKNOWN INDICATION
  4. SODIUM CHLORIDE. [Concomitant]
     Active Substance: SODIUM CHLORIDE
     Indication: PRODUCT USED FOR UNKNOWN INDICATION

REACTIONS (3)
  - Blood creatine phosphokinase increased [Unknown]
  - Rhabdomyolysis [Unknown]
  - Propofol infusion syndrome [Unknown]

NARRATIVE: CASE EVENT DATE: 20170807
